FAERS Safety Report 7801977-4 (Version None)
Quarter: 2011Q4

REPORT INFORMATION
  Report Type: 
  Country: None (occurrence: None)
  Receive Date: 20111007
  Receipt Date: 20110926
  Transmission Date: 20120403
  Serious: Yes (Hospitalization)
  Sender: FDA-Public Use
  Company Number: US-BAYER-2011-004527

PATIENT
  Age: 29 Year
  Sex: Female
  Weight: 54.875 kg

DRUGS (12)
  1. YASMIN [Suspect]
     Indication: ORAL CONTRACEPTION
     Dosage: UNK
     Dates: start: 20020701, end: 20090801
  2. IBUPROFEN [Concomitant]
     Dosage: UNK
     Dates: start: 20080101, end: 20090101
  3. YAZ [Suspect]
     Indication: ACNE
  4. METHOTREXATE [Concomitant]
     Dosage: UNK
     Dates: start: 20090630, end: 20100303
  5. PLAQUENIL [Concomitant]
  6. SUDAFED 12 HOUR [Concomitant]
  7. YASMIN [Suspect]
     Indication: ACNE
  8. YAZ [Suspect]
     Indication: ORAL CONTRACEPTION
     Dosage: UNK
     Dates: start: 20020701, end: 20090801
  9. LO/OVRAL-28 [Concomitant]
     Dosage: UNK
     Dates: start: 20091101
  10. UNCODEABLE ^UNCLASSIFIABLE^ [Concomitant]
     Dosage: UNK
     Dates: start: 20090314, end: 20100101
  11. BACTRIM DS [Concomitant]
  12. GUAIFENESIN/CODEINE [Concomitant]

REACTIONS (10)
  - PANCREATIC CYST [None]
  - PERITONEAL CYST [None]
  - PAIN [None]
  - ANXIETY [None]
  - EMOTIONAL DISTRESS [None]
  - MENTAL DISORDER [None]
  - FEAR [None]
  - HAEMATURIA [None]
  - URINARY TRACT INFECTION [None]
  - HERNIA [None]
